FAERS Safety Report 5235103-5 (Version None)
Quarter: 2007Q1

REPORT INFORMATION
  Report Type: 
  Country: None (occurrence: None)
  Receive Date: 20070207
  Receipt Date: 20070103
  Transmission Date: 20070707
  Serious: No
  Sender: FDA-Public Use
  Company Number: S06-UKI-04995-01

PATIENT
  Age: 22 Year
  Sex: Male

DRUGS (5)
  1. ESCITALOPRAM [Suspect]
     Indication: DEPRESSION
     Dosage: 10 MG QD PO
     Route: 048
     Dates: start: 20060802, end: 20061009
  2. ARIPIPRAZOLE [Suspect]
     Dates: start: 20060601, end: 20060801
  3. LORAZEPAM [Concomitant]
  4. LACTULOSE [Concomitant]
  5. VALPROATE SODIUM [Concomitant]

REACTIONS (1)
  - NEUROLEPTIC MALIGNANT SYNDROME [None]
